FAERS Safety Report 8482369-4 (Version None)
Quarter: 2012Q3

REPORT INFORMATION
  Report Type: 
  Country: None (occurrence: None)
  Receive Date: 20120702
  Receipt Date: 20120622
  Transmission Date: 20120928
  Serious: Yes (Hospitalization)
  Sender: FDA-Public Use
  Company Number: US-JNJFOC-20120502013

PATIENT
  Sex: Female
  Weight: 104.33 kg

DRUGS (24)
  1. CITALOPRAM HYDROBROMIDE [Concomitant]
     Route: 065
  2. TRAMADOL HCL [Concomitant]
     Route: 065
  3. HYDROCHLOROTHIAZIDE [Concomitant]
     Route: 065
  4. INVEGA [Suspect]
     Indication: SCHIZOAFFECTIVE DISORDER
     Dosage: 3 WEEK SUPPLY, ONCE A DAY, 2-6 MG/1-3 MG EVERY MORNING
     Route: 048
     Dates: start: 20071101, end: 20120201
  5. CLONAZEPAM [Concomitant]
     Route: 065
  6. NASONEX [Concomitant]
     Route: 065
  7. INVEGA [Suspect]
     Indication: BIPOLAR DISORDER
     Dosage: 3 WEEK SUPPLY, ONCE A DAY, 2-6 MG/1-3 MG EVERY MORNING
     Route: 048
     Dates: start: 20071101, end: 20120201
  8. TEKTURNA [Concomitant]
     Route: 065
  9. BENICAR HCT [Concomitant]
     Dosage: 40/25 MG
     Route: 065
  10. FLOVENT HFA [Concomitant]
     Route: 065
  11. OMEPRAZOLE [Concomitant]
     Route: 065
  12. ACIPHEX [Concomitant]
     Route: 065
  13. RANITIDINE [Concomitant]
     Route: 065
  14. BYSTOLIC [Concomitant]
     Route: 065
  15. FUROSEMIDE [Concomitant]
     Route: 065
  16. POTASSIUM [Concomitant]
     Route: 065
  17. LYRICA [Concomitant]
     Route: 065
  18. LEVOTHYROXINE SODIUM [Concomitant]
     Route: 065
  19. NAPROXEN [Concomitant]
     Route: 065
  20. ASPIRIN [Concomitant]
     Route: 065
  21. AN UNKNOWN MEDICATION [Concomitant]
     Route: 065
  22. TRAZODONE HCL [Concomitant]
     Route: 065
  23. SINGULAIR [Concomitant]
     Route: 065
  24. BENADRYL [Concomitant]
     Route: 065

REACTIONS (13)
  - ASTHENIA [None]
  - COLONIC POLYP [None]
  - GASTRITIS EROSIVE [None]
  - ANGINA PECTORIS [None]
  - PAIN IN EXTREMITY [None]
  - PAIN [None]
  - ABNORMAL LOSS OF WEIGHT [None]
  - HYPOTENSION [None]
  - DYSKINESIA [None]
  - DIPLOPIA [None]
  - CONFUSIONAL STATE [None]
  - GALLBLADDER DISORDER [None]
  - DIZZINESS [None]
